FAERS Safety Report 5814891-0 (Version None)
Quarter: 2008Q3

REPORT INFORMATION
  Report Type: 
  Country: None (occurrence: None)
  Receive Date: 20080718
  Receipt Date: 20080709
  Transmission Date: 20090109
  Serious: Yes (Hospitalization, Other)
  Sender: FDA-Public Use
  Company Number: GB-JNJFOC-20080702824

PATIENT
  Age: 37 Year
  Sex: Female
  Weight: 85 kg

DRUGS (7)
  1. REMICADE [Suspect]
     Indication: RHEUMATOID ARTHRITIS
     Route: 042
  2. METHOTREXATE [Concomitant]
  3. CIPRAMIL [Concomitant]
  4. CO-DYDRAMOL [Concomitant]
  5. FOLIC ACID [Concomitant]
  6. THROXINE [Concomitant]
  7. VOLTRAN [Concomitant]

REACTIONS (1)
  - UTERINE LEIOMYOMA [None]
